FAERS Safety Report 9439766 (Version 1)
Quarter: 2013Q3

REPORT INFORMATION
  Report Type: Spontaneous
  Country: NL (occurrence: NL)
  Receive Date: 20130805
  Receipt Date: 20130805
  Transmission Date: 20140515
  Serious: Yes (Other)
  Sender: FDA-Public Use
  Company Number: NL-ACCORD-018750

PATIENT
  Age: 54 Year
  Sex: Female
  Weight: 63 kg

DRUGS (3)
  1. ONDANSETRON [Concomitant]
     Indication: CHEMOTHERAPY
     Route: 042
     Dates: start: 20130415, end: 20130415
  2. DEXAMETHASONE [Concomitant]
     Indication: CHEMOTHERAPY
     Route: 048
     Dates: start: 20130414, end: 20130416
  3. DOCETAXEL [Suspect]
     Indication: BREAST CANCER
     Route: 042
     Dates: start: 20130415, end: 20130522

REACTIONS (4)
  - Burning sensation [Recovering/Resolving]
  - Pain [Recovering/Resolving]
  - Local swelling [Recovering/Resolving]
  - Skin exfoliation [Recovering/Resolving]
